FAERS Safety Report 22741793 (Version 2)
Quarter: 2025Q2

REPORT INFORMATION
  Report Type: Spontaneous
  Country: PT (occurrence: PT)
  Receive Date: 20230724
  Receipt Date: 20250619
  Transmission Date: 20250717
  Serious: Yes (Hospitalization, Other)
  Sender: ACCORD
  Company Number: PT-Accord-369242

PATIENT
  Age: 58 Year
  Sex: Male

DRUGS (8)
  1. METHOTREXATE [Suspect]
     Active Substance: METHOTREXATE
     Indication: Systemic scleroderma
  2. PREDNISOLONE [Suspect]
     Active Substance: PREDNISOLONE
     Indication: Systemic scleroderma
  3. FOLIC ACID [Concomitant]
     Active Substance: FOLIC ACID
     Indication: Systemic scleroderma
  4. NIFEDIPINE [Concomitant]
     Active Substance: NIFEDIPINE
     Indication: Systemic scleroderma
  5. METHOTREXATE [Suspect]
     Active Substance: METHOTREXATE
     Indication: Dermatomyositis
  6. FOLIC ACID [Concomitant]
     Active Substance: FOLIC ACID
     Indication: Dermatomyositis
  7. PREDNISOLONE [Suspect]
     Active Substance: PREDNISOLONE
     Indication: Dermatomyositis
  8. NIFEDIPINE [Concomitant]
     Active Substance: NIFEDIPINE
     Indication: Dermatomyositis

REACTIONS (4)
  - Scleroderma renal crisis [Unknown]
  - Pancytopenia [Unknown]
  - Off label use [Unknown]
  - Anaemia [Unknown]
